FAERS Safety Report 9802343 (Version 2)
Quarter: 2014Q3

REPORT INFORMATION
  Report Type: Spontaneous
  Country: US (occurrence: US)
  Receive Date: 20140107
  Receipt Date: 20140811
  Transmission Date: 20150326
  Serious: Yes (Hospitalization, Other)
  Sender: FDA-Public Use
  Company Number: US-009507513-1401USA002050

PATIENT
  Sex: Female

DRUGS (1)
  1. NUVARING [Suspect]
     Active Substance: ETHINYL ESTRADIOL\ETONOGESTREL
     Dosage: UNK
     Route: 067

REACTIONS (9)
  - Fatigue [Unknown]
  - Atelectasis [Unknown]
  - Pulmonary embolism [Unknown]
  - Joint laxity [Unknown]
  - Appendicectomy [Unknown]
  - Tonsillectomy [Unknown]
  - Hip surgery [Unknown]
  - Vomiting [Unknown]
  - Back pain [Not Recovered/Not Resolved]

NARRATIVE: CASE EVENT DATE: 20110419
